FAERS Safety Report 7640180-8 (Version None)
Quarter: 2011Q3

REPORT INFORMATION
  Report Type: 
  Country: None (occurrence: None)
  Receive Date: 20110728
  Receipt Date: 20110630
  Transmission Date: 20111222
  Serious: Yes (Other)
  Sender: FDA-Public Use
  Company Number: US-BAYER-2011-000647

PATIENT
  Age: 36 Year
  Sex: Female
  Weight: 81.633 kg

DRUGS (6)
  1. DROSPIRENONE AND ETHINYL ESTRADIOL [Suspect]
     Indication: CONTRACEPTION
  2. YASMIN [Suspect]
     Indication: ACNE
     Dosage: UNK
     Dates: start: 20020101, end: 20081101
  3. DROSPIRENONE AND ETHINYL ESTRADIOL [Suspect]
     Indication: ACNE
     Dosage: UNK
     Dates: start: 20020101, end: 20081101
  4. ALBUTEROL [Concomitant]
     Dosage: UNK UNK, PRN
     Dates: start: 20060101
  5. ACETAMINOPHEN [Concomitant]
     Indication: ANALGESIC THERAPY
     Dosage: UNK UNK, PRN
  6. YASMIN [Suspect]
     Indication: CONTRACEPTION

REACTIONS (4)
  - PAIN [None]
  - INJURY [None]
  - CEREBROVASCULAR ACCIDENT [None]
  - BLINDNESS UNILATERAL [None]
